FAERS Safety Report 9299821 (Version 1)
Quarter: 2013Q2

REPORT INFORMATION
  Report Type: Spontaneous
  Country: CO (occurrence: CO)
  Receive Date: 20130521
  Receipt Date: 20130521
  Transmission Date: 20140414
  Serious: Yes (Hospitalization)
  Sender: FDA-Public Use
  Company Number: CO-AMGEN-COLSP2013035369

PATIENT
  Age: 80 Year
  Sex: Female

DRUGS (3)
  1. ENBREL [Suspect]
     Indication: RHEUMATOID ARTHRITIS
     Dosage: 50 MG, UNK
     Route: 058
     Dates: start: 2012, end: 2013
  2. LOSARTAN [Concomitant]
     Indication: HYPERTENSION
     Dosage: UNK, 1X/DAY
     Route: 048
     Dates: start: 1983
  3. LYRICA [Concomitant]
     Indication: FACE INJURY
     Dosage: 75 MG, 1X/DAY
     Route: 048
     Dates: start: 2009

REACTIONS (2)
  - Drug hypersensitivity [Unknown]
  - Pruritus generalised [Unknown]
